FAERS Safety Report 8505622-4 (Version None)
Quarter: 2012Q3

REPORT INFORMATION
  Report Type: 
  Country: None (occurrence: None)
  Receive Date: 20120703
  Receipt Date: 20120628
  Transmission Date: 20120928
  Serious: No
  Sender: FDA-Public Use
  Company Number: 2012SP036739

PATIENT
  Age: 38 Year
  Sex: Female

DRUGS (8)
  1. BISOPROLOL FUMARATE [Concomitant]
  2. FRUSEMIDE [Concomitant]
  3. PREGABALIN [Concomitant]
  4. ASPIRIN [Concomitant]
  5. METFORMIN HYDROCHLORIDE [Concomitant]
  6. NEXPLANON [Suspect]
     Indication: CONTRACEPTION
     Dosage: 1 DF;;SBDE
     Route: 059
     Dates: start: 20110104, end: 20120611
  7. PERINDOPRIL ERBUMINE [Concomitant]
  8. SIMVASTATIN [Concomitant]

REACTIONS (4)
  - HAEMORRHAGE [None]
  - GROIN PAIN [None]
  - DEPRESSED MOOD [None]
  - HEADACHE [None]
